FAERS Safety Report 6190971-8 (Version None)
Quarter: 2009Q2

REPORT INFORMATION
  Report Type: 
  Country: None (occurrence: None)
  Receive Date: 20090514
  Receipt Date: 20090507
  Transmission Date: 20091009
  Serious: Yes (Hospitalization)
  Sender: FDA-Public Use
  Company Number: GB-NOVOPROD-286966

PATIENT
  Sex: Female

DRUGS (2)
  1. NOVOLOG MIX 70/30 [Suspect]
     Indication: DIABETES MELLITUS
  2. NOVOMIX 30 FLEXPEN [Suspect]
     Indication: DIABETES MELLITUS

REACTIONS (2)
  - ANGINA PECTORIS [None]
  - DEVICE MALFUNCTION [None]
